FAERS Safety Report 24001698 (Version 1)
Quarter: 2024Q2

REPORT INFORMATION
  Report Type: Spontaneous
  Country: JP (occurrence: JP)
  Receive Date: 20240621
  Receipt Date: 20240621
  Transmission Date: 20240715
  Serious: Yes (Other)
  Sender: FDA-Public Use
  Company Number: JP-Eisai-202401528_FYC_P_1

PATIENT
  Sex: Male

DRUGS (5)
  1. FYCOMPA [Suspect]
     Active Substance: PERAMPANEL
     Indication: Epilepsy
     Route: 048
     Dates: start: 20240314, end: 20240326
  2. FYCOMPA [Suspect]
     Active Substance: PERAMPANEL
     Route: 048
     Dates: start: 20240327, end: 20240416
  3. FAMOTIDINE [Concomitant]
     Active Substance: FAMOTIDINE
     Indication: Product used for unknown indication
     Dates: start: 20240314, end: 20240416
  4. TEGRETOL [Concomitant]
     Active Substance: CARBAMAZEPINE
     Indication: Seizure prophylaxis
     Dates: start: 20240424
  5. TEGRETOL [Concomitant]
     Active Substance: CARBAMAZEPINE
     Dates: start: 20240416, end: 20240423

REACTIONS (2)
  - Aggression [Recovered/Resolved]
  - Angioedema [Recovered/Resolved]

NARRATIVE: CASE EVENT DATE: 20240415
